FAERS Safety Report 17086336 (Version 1)
Quarter: 2019Q4

REPORT INFORMATION
  Report Type: Spontaneous
  Country: US (occurrence: US)
  Receive Date: 20191128
  Receipt Date: 20191128
  Transmission Date: 20200122
  Serious: No
  Sender: FDA-Public Use
  Company Number: US-UCBSA-2018043279

PATIENT
  Sex: Male

DRUGS (1)
  1. NEUPRO [Suspect]
     Active Substance: ROTIGOTINE
     Indication: NERVOUS SYSTEM DISORDER
     Dosage: 2 MG, ONCE DAILY (QD)

REACTIONS (2)
  - Intentional product misuse [Unknown]
  - Product adhesion issue [Unknown]
